FAERS Safety Report 7486865-8 (Version None)
Quarter: 2011Q2

REPORT INFORMATION
  Report Type: 
  Country: None (occurrence: None)
  Receive Date: 20110517
  Receipt Date: 20110510
  Transmission Date: 20111010
  Serious: Yes (Disabling, Other)
  Sender: FDA-Public Use
  Company Number: US-US-EMD SERONO, INC.-232553J10USA

PATIENT
  Sex: Female

DRUGS (3)
  1. ACETAMINOPHEN [Concomitant]
     Indication: PREMEDICATION
     Route: 065
  2. REBIF [Suspect]
     Indication: MULTIPLE SCLEROSIS
     Route: 058
     Dates: start: 20040712
  3. ENABLEX [Concomitant]
     Indication: MICTURITION URGENCY
     Route: 065

REACTIONS (12)
  - DEAFNESS UNILATERAL [None]
  - IRRITABILITY [None]
  - MEMORY IMPAIRMENT [None]
  - RECTOCELE [None]
  - HEAD INJURY [None]
  - FALL [None]
  - TINNITUS [None]
  - HEADACHE [None]
  - CONCUSSION [None]
  - DISTURBANCE IN ATTENTION [None]
  - HYPERTENSION [None]
  - URINARY RETENTION [None]
